FAERS Safety Report 4651857-0 (Version None)
Quarter: 2005Q2

REPORT INFORMATION
  Report Type: 
  Country: None (occurrence: None)
  Receive Date: 20050504
  Receipt Date: 20050428
  Transmission Date: 20051028
  Serious: Yes (Hospitalization)
  Sender: FDA-Public Use
  Company Number: 143

PATIENT
  Age: 65 Year
  Sex: Male
  Weight: 81 kg

DRUGS (8)
  1. MELPHALAN [Suspect]
     Indication: MULTIPLE MYELOMA
     Dosage: 392MG PER DAY
     Route: 042
     Dates: start: 20050210
  2. THALIDOMIDE [Suspect]
     Indication: MULTIPLE MYELOMA
  3. RANITIDINE [Concomitant]
     Dosage: 150MG TWICE PER DAY
     Route: 048
  4. SYNTHROID [Concomitant]
     Indication: HYPOTHYROIDISM
     Dosage: .1MG PER DAY
     Route: 048
  5. FLUCONAZOLE [Concomitant]
     Dosage: 200MG PER DAY
     Route: 048
  6. MAGNESIUM OXIDE [Concomitant]
     Indication: CONSTIPATION
     Dosage: 250MG THREE TIMES PER DAY
     Route: 048
  7. ACYCLOVIR [Concomitant]
     Dosage: 400MG PER DAY
     Route: 048
  8. LEVAQUIN [Concomitant]
     Dosage: 500MG PER DAY
     Route: 048

REACTIONS (1)
  - PYREXIA [None]
